FAERS Safety Report 16750964 (Version 1)
Quarter: 2019Q3

REPORT INFORMATION
  Report Type: Spontaneous
  Country: CA (occurrence: CA)
  Receive Date: 20190828
  Receipt Date: 20190828
  Transmission Date: 20191005
  Serious: Yes (Hospitalization)
  Sender: FDA-Public Use
  Company Number: CA-PFIZER INC-2019365667

PATIENT
  Age: 67 Year
  Sex: Female

DRUGS (19)
  1. GEMCITABINE HYDROCHLORIDE. [Suspect]
     Active Substance: GEMCITABINE HYDROCHLORIDE
     Dosage: 1320 MG, 3 EVERY 28 DAYS
     Route: 041
  2. MEDI4736 [Suspect]
     Active Substance: DURVALUMAB
     Dosage: 1500 MG, 1 EVERY 4 WEEKS
     Route: 041
  3. ONDANSETRON [Concomitant]
     Active Substance: ONDANSETRON
     Indication: PROPHYLAXIS OF NAUSEA AND VOMITING
     Dosage: UNK
     Route: 065
  4. DALTEPARIN SODIUM [Concomitant]
     Active Substance: DALTEPARIN SODIUM
     Indication: THROMBOSIS
     Dosage: UNK
     Route: 065
  5. GEMCITABINE HYDROCHLORIDE. [Suspect]
     Active Substance: GEMCITABINE HYDROCHLORIDE
     Indication: PANCREATIC CARCINOMA
     Dosage: 1320 MG, 3 EVERY 28 DAYS
     Route: 041
  6. HYDROMORPHONE [Concomitant]
     Active Substance: HYDROMORPHONE
     Indication: GASTROINTESTINAL PAIN
     Dosage: UNK
     Route: 065
  7. SENOKOT [Concomitant]
     Active Substance: SENNOSIDES
     Indication: CONSTIPATION
     Dosage: UNK
     Route: 065
  8. MEDI4736 [Suspect]
     Active Substance: DURVALUMAB
     Indication: PANCREATIC CARCINOMA
     Dosage: 1500 MG, 1 EVERY 4 WEEKS
     Route: 041
  9. MEDI4736 [Suspect]
     Active Substance: DURVALUMAB
     Dosage: 1500 MG, 1 EVERY 4 WEEKS
     Route: 041
  10. CANNABIS SATIVA [Concomitant]
     Active Substance: CANNABIS SATIVA SUBSP. SATIVA FLOWERING TOP
     Indication: APPETITE DISORDER
     Dosage: UNK
     Route: 065
  11. ABRAXANE [Suspect]
     Active Substance: PACLITAXEL
     Dosage: 165 MG, 3 EVERY 28 DAYS
     Route: 041
  12. DALTEPARIN SODIUM [Concomitant]
     Active Substance: DALTEPARIN SODIUM
     Indication: EMBOLISM
  13. TICILIMUMAB [Suspect]
     Active Substance: TREMELIMUMAB
     Indication: PANCREATIC CARCINOMA
     Dosage: 75 MG, 1 EVERY 4 WEEKS
     Route: 041
  14. DEXAMETHASONE. [Concomitant]
     Active Substance: DEXAMETHASONE
     Indication: PROPHYLAXIS OF NAUSEA AND VOMITING
     Dosage: UNK
     Route: 065
  15. ABRAXANE [Suspect]
     Active Substance: PACLITAXEL
     Indication: PANCREATIC CARCINOMA
     Dosage: 165 MG, 3 EVERY 28 DAYS
     Route: 041
  16. TICILIMUMAB [Suspect]
     Active Substance: TREMELIMUMAB
     Dosage: 75 MG, 1 EVERY 4 WEEKS
     Route: 041
  17. HYDROMORPHONE HYDROCHLORIDE. [Concomitant]
     Active Substance: HYDROMORPHONE HYDROCHLORIDE
     Indication: GASTROINTESTINAL PAIN
     Dosage: UNK
     Route: 065
  18. HYDROMORPHONE HYDROCHLORIDE. [Concomitant]
     Active Substance: HYDROMORPHONE HYDROCHLORIDE
     Indication: ABDOMINAL PAIN
  19. HYDROMORPHONE [Concomitant]
     Active Substance: HYDROMORPHONE
     Indication: ABDOMINAL PAIN

REACTIONS (4)
  - Dyspnoea [Recovered/Resolved]
  - Pericardial effusion [Recovered/Resolved]
  - Insomnia [Recovered/Resolved]
  - Pleural effusion [Recovered/Resolved]
